FAERS Safety Report 5569522-4 (Version None)
Quarter: 2007Q4

REPORT INFORMATION
  Report Type: 
  Country: None (occurrence: None)
  Receive Date: 20071220
  Receipt Date: 20071213
  Transmission Date: 20080405
  Serious: Yes (Other)
  Sender: FDA-Public Use
  Company Number: DE-AMGEN-UK253717

PATIENT
  Sex: Male

DRUGS (2)
  1. MIMPARA [Suspect]
     Indication: DRUG USE FOR UNKNOWN INDICATION
     Route: 048
     Dates: start: 20071024, end: 20071119
  2. CABERGOLINE [Suspect]
     Route: 065

REACTIONS (1)
  - CHOREA [None]
